FAERS Safety Report 7660643-9 (Version None)
Quarter: 2011Q3

REPORT INFORMATION
  Report Type: 
  Country: None (occurrence: None)
  Receive Date: 20110805
  Receipt Date: 20101118
  Transmission Date: 20111222
  Serious: No
  Sender: FDA-Public Use
  Company Number: US-ABBOTT-10P-163-0686928-00

PATIENT
  Sex: Female
  Weight: 68.1 kg

DRUGS (8)
  1. PLAVIX [Concomitant]
     Indication: CARDIOVASCULAR DISORDER
     Dates: start: 20080101
  2. SIMVASTATIN [Concomitant]
     Indication: BLOOD CHOLESTEROL INCREASED
     Dates: start: 20080101
  3. NIASPAN [Suspect]
     Dates: start: 20100801, end: 20100801
  4. NIASPAN [Suspect]
     Dates: start: 20100901
  5. NIASPAN [Suspect]
     Dates: start: 20100801, end: 20100901
  6. THYROID TAB [Concomitant]
     Indication: HYPOTHYROIDISM
  7. NIASPAN [Suspect]
     Indication: BLOOD TRIGLYCERIDES INCREASED
     Dates: start: 20080101, end: 20100801
  8. LISINOPRIL [Concomitant]
     Indication: HYPERTENSION
     Dates: start: 20080101

REACTIONS (5)
  - PRURITUS [None]
  - PAIN [None]
  - FATIGUE [None]
  - FLUSHING [None]
  - INFLUENZA LIKE ILLNESS [None]
